FAERS Safety Report 5336676-4 (Version None)
Quarter: 2007Q2

REPORT INFORMATION
  Report Type: 
  Country: None (occurrence: None)
  Receive Date: 20070524
  Receipt Date: 20070514
  Transmission Date: 20071010
  Serious: Yes (Hospitalization)
  Sender: FDA-Public Use
  Company Number: 2007BI006119

PATIENT
  Age: 68 Year
  Sex: Female

DRUGS (6)
  1. AVONEX [Suspect]
     Indication: MULTIPLE SCLEROSIS
     Dosage: IM
     Route: 030
     Dates: start: 20041021
  2. ENALAPRIL MALEATE [Concomitant]
  3. ZOCOR [Concomitant]
  4. ALLEGRA [Concomitant]
  5. ACTONEL [Concomitant]
  6. MOBIC [Concomitant]

REACTIONS (1)
  - DEEP VEIN THROMBOSIS [None]
